FAERS Safety Report 18747424 (Version 2)
Quarter: 2021Q1

REPORT INFORMATION
  Report Type: Report from Study
  Country: US (occurrence: US)
  Receive Date: 20210115
  Receipt Date: 20210305
  Transmission Date: 20210419
  Serious: Yes (Other)
  Sender: FDA-Public Use
  Company Number: NVSC2021US006647

PATIENT
  Sex: Female

DRUGS (1)
  1. COSENTYX [Suspect]
     Active Substance: SECUKINUMAB
     Indication: PSORIATIC ARTHROPATHY
     Dosage: 150 MG, Q4W
     Route: 058
     Dates: start: 202009

REACTIONS (7)
  - Psoriatic arthropathy [Unknown]
  - Cognitive disorder [Recovered/Resolved]
  - Psoriasis [Recovered/Resolved]
  - Muscle rigidity [Unknown]
  - Speech disorder [Recovered/Resolved]
  - Pain [Unknown]
  - Therapeutic product effect decreased [Unknown]
